FAERS Safety Report 6580114-0 (Version None)
Quarter: 2010Q1

REPORT INFORMATION
  Report Type: 
  Country: None (occurrence: None)
  Receive Date: 20100212
  Receipt Date: 20100204
  Transmission Date: 20100710
  Serious: Yes (Other)
  Sender: FDA-Public Use
  Company Number: NO-PFIZER INC-2010014825

PATIENT
  Age: 44 Year
  Sex: Female

DRUGS (4)
  1. LIPITOR [Suspect]
     Route: 048
  2. SIMVASTATIN [Suspect]
  3. PREDNISOLONE [Concomitant]
     Dosage: WITHDRAWN DUE TO A MISUNDERSTANDING 2 WEEKS PRIOR TO 20090908. REINSTATED.
  4. IMUREL [Concomitant]

REACTIONS (1)
  - LUPUS-LIKE SYNDROME [None]
